FAERS Safety Report 19933161 (Version 2)
Quarter: 2021Q4

REPORT INFORMATION
  Report Type: Spontaneous
  Country: US (occurrence: US)
  Receive Date: 20211008
  Receipt Date: 20211014
  Transmission Date: 20220303
  Serious: Yes (Death)
  Sender: FDA-Public Use
  Company Number: US-ROCHE-2930442

PATIENT
  Sex: Male

DRUGS (2)
  1. RITUXAN [Suspect]
     Active Substance: RITUXIMAB
     Indication: Chronic lymphocytic leukaemia
     Dosage: SINGLE DOSE VIAL 500MG/50 ML
     Route: 042
     Dates: start: 201611, end: 202109
  2. RITUXAN [Suspect]
     Active Substance: RITUXIMAB
     Indication: Acute lymphocytic leukaemia

REACTIONS (1)
  - COVID-19 [Fatal]
